FAERS Safety Report 6717183-0 (Version None)
Quarter: 2010Q2

REPORT INFORMATION
  Report Type: 
  Country: None (occurrence: None)
  Receive Date: 20100510
  Receipt Date: 20100428
  Transmission Date: 20101027
  Serious: Yes (Hospitalization)
  Sender: FDA-Public Use
  Company Number: GB-SANOFI-AVENTIS-2010SA025005

PATIENT
  Age: 55 Year
  Sex: Female
  Weight: 104.2 kg

DRUGS (9)
  1. FUROSEMIDE [Suspect]
     Indication: DRUG USE FOR UNKNOWN INDICATION
     Route: 065
     Dates: end: 20100114
  2. RISPERIDONE [Suspect]
     Route: 030
     Dates: start: 20070813, end: 20100114
  3. RISPERIDONE [Suspect]
     Route: 030
  4. FERROUS SULFATE TAB [Concomitant]
     Indication: IRON DEFICIENCY ANAEMIA
     Route: 065
  5. INSULIN [Concomitant]
     Route: 065
  6. LEVOTHYROXINE SODIUM [Concomitant]
     Indication: HYPOTHYROIDISM
     Route: 065
  7. NORETHISTERONE [Concomitant]
     Indication: REPRODUCTIVE TRACT DISORDER
     Route: 065
  8. PROCYCLIDINE HYDROCHLORIDE 2MG TAB [Concomitant]
     Route: 065
  9. SIMVASTATIN [Concomitant]
     Route: 065

REACTIONS (1)
  - RENAL FAILURE ACUTE [None]
